FAERS Safety Report 4780496-6 (Version None)
Quarter: 2005Q3

REPORT INFORMATION
  Report Type: 
  Country: None (occurrence: None)
  Receive Date: 20050926
  Receipt Date: 20050921
  Transmission Date: 20060218
  Serious: Yes (Other)
  Sender: FDA-Public Use
  Company Number: 2005-08-2114

PATIENT
  Age: 4 Year
  Sex: Female
  Weight: 14.5151 kg

DRUGS (2)
  1. CHILDREN'S CLARITIN SYRUP (LORATADINE) [Suspect]
     Indication: MULTIPLE ALLERGIES
     Dosage: 5 ML X 1 ORAL
     Route: 048
     Dates: start: 20050826, end: 20050826
  2. FLINTSTONES MULTIPLE VITAMNS [Concomitant]

REACTIONS (3)
  - ABNORMAL BEHAVIOUR [None]
  - AGGRESSION [None]
  - PSYCHOMOTOR HYPERACTIVITY [None]
